FAERS Safety Report 7333659-X (Version None)
Quarter: 2011Q1

REPORT INFORMATION
  Report Type: 
  Country: None (occurrence: None)
  Receive Date: 20110306
  Receipt Date: 20110223
  Transmission Date: 20110831
  Serious: Yes (Hospitalization, Other)
  Sender: FDA-Public Use
  Company Number: US-ELI_LILLY_AND_COMPANY-US201004001083

PATIENT
  Sex: Female

DRUGS (18)
  1. NORVASC [Concomitant]
  2. POTASSIUM CHLORIDE [Concomitant]
  3. FORTEO [Suspect]
     Dosage: 20 UG, DAILY (1/D)
  4. ZOLOFT [Concomitant]
  5. VITAMIN D [Concomitant]
  6. CENTRUM [Concomitant]
  7. OXYCONTIN [Concomitant]
  8. ANTIHYPERTENSIVES [Concomitant]
  9. FORTEO [Suspect]
     Dosage: 20 UG, DAILY (1/D)
     Dates: start: 20100312
  10. FORTEO [Suspect]
     Indication: OSTEOPOROSIS
     Dosage: 20 UG, DAILY (1/D)
     Dates: start: 20100217, end: 20100218
  11. VITAMINS NOS [Concomitant]
  12. FORTEO [Suspect]
     Dosage: 20 UG, DAILY (1/D)
  13. LIPITOR [Concomitant]
  14. CITRACAL [Concomitant]
  15. FISH OIL [Concomitant]
  16. OMEPRAZOLE [Concomitant]
  17. CALCIUM [Concomitant]
  18. PRILOSEC [Concomitant]

REACTIONS (17)
  - ARTHRITIS [None]
  - CHOLELITHIASIS [None]
  - LUMBAR VERTEBRAL FRACTURE [None]
  - GASTROINTESTINAL DISORDER [None]
  - PAIN IN EXTREMITY [None]
  - DRUG DOSE OMISSION [None]
  - DIZZINESS [None]
  - FALL [None]
  - PAIN [None]
  - HIP FRACTURE [None]
  - WEIGHT DECREASED [None]
  - PELVIC FRACTURE [None]
  - HIATUS HERNIA [None]
  - DYSPHAGIA [None]
  - OESOPHAGEAL DISORDER [None]
  - HEADACHE [None]
  - BACK PAIN [None]
